FAERS Safety Report 8771074 (Version 1)
Quarter: 2012Q4

REPORT INFORMATION
  Report Type: 
  Country: US (occurrence: US)
  Receive Date: 20120906
  Receipt Date: 20120906
  Transmission Date: 20130627
  Serious: Yes (Other)
  Sender: FDA-Public Use
  Company Number: US-PFIZER INC-2012217674

PATIENT
  Age: 54 Year
  Sex: Male
  Weight: 82 kg

DRUGS (3)
  1. CELEBREX [Suspect]
     Indication: ANKYLOSING SPONDYLITIS
     Dosage: 100 mg, UNK
     Route: 048
  2. CELEBREX [Suspect]
     Dosage: 200 mg, 2x/day
     Route: 048
     Dates: end: 201208
  3. CELEBREX [Suspect]
     Dosage: 100 mg, 2x/day
     Route: 048
     Dates: start: 201208

REACTIONS (2)
  - Ankylosing spondylitis [Not Recovered/Not Resolved]
  - Drug ineffective [Unknown]
